FAERS Safety Report 9707842 (Version 2)
Quarter: 2013Q4

REPORT INFORMATION
  Report Type: Spontaneous
  Country: CL (occurrence: CL)
  Receive Date: 20131125
  Receipt Date: 20131127
  Transmission Date: 20140711
  Serious: Yes (Other)
  Sender: FDA-Public Use
  Company Number: CL-PFIZER INC-2013334298

PATIENT
  Sex: Female

DRUGS (5)
  1. METOTREXATO [Suspect]
     Dosage: 1 DF, WEEKLY
  2. MEDROL [Suspect]
  3. IBUPROFEN [Concomitant]
  4. HYDROXYCHLOROQUINE [Concomitant]
  5. EUTIROX [Concomitant]

REACTIONS (1)
  - Sepsis [Unknown]
